FAERS Safety Report 7768461-8 (Version None)
Quarter: 2011Q3

REPORT INFORMATION
  Report Type: 
  Country: None (occurrence: None)
  Receive Date: 20110922
  Receipt Date: 20110429
  Transmission Date: 20111222
  Serious: No
  Sender: FDA-Public Use
  Company Number: US-ASTRAZENECA-2011SE24921

PATIENT
  Age: 27 Year
  Sex: Female
  Weight: 77.1 kg

DRUGS (1)
  1. SEROQUEL XR [Suspect]
     Indication: BIPOLAR DISORDER
     Route: 048
     Dates: start: 20110101

REACTIONS (4)
  - ECZEMA [None]
  - MILK ALLERGY [None]
  - HYPERSENSITIVITY [None]
  - NASAL CONGESTION [None]
